FAERS Safety Report 6366238-1 (Version None)
Quarter: 2009Q3

REPORT INFORMATION
  Report Type: 
  Country: None (occurrence: None)
  Receive Date: 20090921
  Receipt Date: 20090912
  Transmission Date: 20100115
  Serious: Yes (Other)
  Sender: FDA-Public Use
  Company Number: US-JNJFOC-20090904753

PATIENT
  Age: 28 Year
  Sex: Male

DRUGS (1)
  1. SIMPLY SLEEP NIGHTTIME [Suspect]
     Indication: DRUG USE FOR UNKNOWN INDICATION
     Dosage: ^WHOLE BOTTLE^

REACTIONS (1)
  - INTENTIONAL OVERDOSE [None]
